FAERS Safety Report 18330679 (Version 1)
Quarter: 2020Q3

REPORT INFORMATION
  Report Type: Spontaneous
  Country: US (occurrence: US)
  Receive Date: 20200930
  Receipt Date: 20200930
  Transmission Date: 20201103
  Serious: Yes (Hospitalization)
  Sender: FDA-Public Use
  Company Number: US-SHIRE-US202031650

PATIENT
  Age: 49 Year
  Sex: Female
  Weight: 86.16 kg

DRUGS (4)
  1. GATTEX [Suspect]
     Active Substance: TEDUGLUTIDE\WATER
     Indication: PRODUCT USED FOR UNKNOWN INDICATION
     Dosage: 0.43 (DOSE UNKNOWN), 1X/DAY:QD
     Route: 065
     Dates: start: 20190506
  2. GATTEX [Suspect]
     Active Substance: TEDUGLUTIDE\WATER
     Indication: PRODUCT USED FOR UNKNOWN INDICATION
     Dosage: 0.43 (DOSE UNKNOWN), 1X/DAY:QD
     Route: 065
     Dates: start: 20190506
  3. GATTEX [Suspect]
     Active Substance: TEDUGLUTIDE\WATER
     Indication: PRODUCT USED FOR UNKNOWN INDICATION
     Dosage: 0.43 (DOSE UNKNOWN), 1X/DAY:QD
     Route: 065
     Dates: start: 20190506
  4. GATTEX [Suspect]
     Active Substance: TEDUGLUTIDE\WATER
     Indication: PRODUCT USED FOR UNKNOWN INDICATION
     Dosage: 0.43 (DOSE UNKNOWN), 1X/DAY:QD
     Route: 065
     Dates: start: 20190506

REACTIONS (1)
  - Dehydration [Recovered/Resolved]

NARRATIVE: CASE EVENT DATE: 20200927
